FAERS Safety Report 5625448-9 (Version None)
Quarter: 2008Q1

REPORT INFORMATION
  Report Type: 
  Country: None (occurrence: None)
  Receive Date: 20080211
  Receipt Date: 20080131
  Transmission Date: 20080703
  Serious: Yes (Hospitalization)
  Sender: FDA-Public Use
  Company Number: 2008SP000222

PATIENT
  Age: 88 Year
  Sex: Female
  Weight: 49.8957 kg

DRUGS (7)
  1. LUNESTA [Suspect]
     Indication: INSOMNIA
     Dosage: 3 MG;HS;ORAL
     Route: 048
     Dates: start: 20070901
  2. POTASSIUM CHLORIDE [Concomitant]
  3. ASPIRIN [Concomitant]
  4. PROPRANOLOL [Concomitant]
  5. XANAX [Concomitant]
  6. ADVIL [Concomitant]
  7. LASIX [Concomitant]

REACTIONS (2)
  - CHRONIC OBSTRUCTIVE PULMONARY DISEASE [None]
  - CONDITION AGGRAVATED [None]
